FAERS Safety Report 6187710-3 (Version None)
Quarter: 2009Q2

REPORT INFORMATION
  Report Type: 
  Country: None (occurrence: None)
  Receive Date: 20090513
  Receipt Date: 20090430
  Transmission Date: 20091009
  Serious: Yes (Hospitalization)
  Sender: FDA-Public Use
  Company Number: DK-PFIZER INC-2009207737

PATIENT
  Age: 68 Year

DRUGS (1)
  1. LOPID [Suspect]
     Indication: HYPERCHOLESTEROLAEMIA
     Dosage: 600 MG, 2X/DAY
     Route: 048
     Dates: end: 20090416

REACTIONS (1)
  - RENAL FAILURE ACUTE [None]
